FAERS Safety Report 8347341-3 (Version None)
Quarter: 2012Q2

REPORT INFORMATION
  Report Type: 
  Country: None (occurrence: None)
  Receive Date: 20120509
  Receipt Date: 20120425
  Transmission Date: 20120825
  Serious: Yes (Other)
  Sender: FDA-Public Use
  Company Number: US-ROCHE-1057870

PATIENT

DRUGS (1)
  1. ALTEPLASE [Suspect]
     Indication: PLEURAL EFFUSION

REACTIONS (1)
  - CHEST PAIN [None]
